FAERS Safety Report 23325596 (Version 7)
Quarter: 2024Q2

REPORT INFORMATION
  Report Type: Spontaneous
  Country: BR (occurrence: BR)
  Receive Date: 20231221
  Receipt Date: 20240605
  Transmission Date: 20240716
  Serious: Yes (Hospitalization, Other)
  Sender: FDA-Public Use
  Company Number: BR-JNJFOC-20231239706

PATIENT
  Age: 66 Year
  Sex: Female

DRUGS (8)
  1. HALDOL [Suspect]
     Active Substance: HALOPERIDOL
     Indication: Product used for unknown indication
     Dosage: DOSE: HALF TABLE IN MORNING AND 1 AT NIGHT
     Route: 048
  2. HALDOL [Suspect]
     Active Substance: HALOPERIDOL
     Route: 048
  3. EZETIMIBE [Concomitant]
     Active Substance: EZETIMIBE
     Dosage: 2 UNITS
  4. PHENOBARBITAL [Concomitant]
     Active Substance: PHENOBARBITAL
     Dosage: (1 UNIT IN THE MORNING
  5. DIAZEPAM [Concomitant]
     Active Substance: DIAZEPAM
     Dosage: 1 UNIT
  6. ANASTROZOLE [Concomitant]
     Active Substance: ANASTROZOLE
  7. TRAUM RETARD [Concomitant]
  8. TEGRETOL [Concomitant]
     Active Substance: CARBAMAZEPINE

REACTIONS (41)
  - Drug dependence [Unknown]
  - Urinary retention [Unknown]
  - Peripheral paralysis [Unknown]
  - Breast cancer [Unknown]
  - Epilepsy [Unknown]
  - Tardive dyskinesia [Unknown]
  - Confusional state [Unknown]
  - Slow speech [Unknown]
  - Dysphonia [Unknown]
  - Inappropriate schedule of product administration [Unknown]
  - Strabismus [Unknown]
  - Dizziness [Not Recovered/Not Resolved]
  - Gait inability [Unknown]
  - Decreased appetite [Unknown]
  - Amnesia [Unknown]
  - Motor dysfunction [Not Recovered/Not Resolved]
  - Dysgraphia [Unknown]
  - Pruritus [Unknown]
  - Vision blurred [Recovering/Resolving]
  - Fatigue [Unknown]
  - Nausea [Unknown]
  - Dysphagia [Unknown]
  - Vomiting [Unknown]
  - Weight increased [Unknown]
  - Cardiac disorder [Unknown]
  - Loss of personal independence in daily activities [Unknown]
  - Adverse drug reaction [Unknown]
  - Sedation [Unknown]
  - Anaemia [Unknown]
  - Polyuria [Unknown]
  - Feeling abnormal [Unknown]
  - Movement disorder [Unknown]
  - Visual impairment [Unknown]
  - Feeling drunk [Unknown]
  - Sensory disturbance [Unknown]
  - Hypertension [Unknown]
  - Fear of death [Unknown]
  - Nervousness [Unknown]
  - Crying [Unknown]
  - Incorrect dose administered [Unknown]
  - Wrong technique in product usage process [Unknown]
